FAERS Safety Report 23070252 (Version 1)
Quarter: 2023Q4

REPORT INFORMATION
  Report Type: Spontaneous
  Country: GB (occurrence: GB)
  Receive Date: 20231016
  Receipt Date: 20231016
  Transmission Date: 20240110
  Serious: Yes (Other)
  Sender: FDA-Public Use
  Company Number: GB-MHRA-MED-202310051536439350-KWCVF

PATIENT
  Age: 69 Year
  Sex: Female
  Weight: 85 kg

DRUGS (10)
  1. DOCETAXEL [Suspect]
     Active Substance: DOCETAXEL
     Indication: Triple negative breast cancer
     Dosage: 180MG EVERY 21 DAYS, DURATION: 63 DAYS
     Route: 065
     Dates: start: 20230718, end: 20230919
  2. DOXORUBICIN [Suspect]
     Active Substance: DOXORUBICIN
     Indication: Triple negative breast cancer
     Dosage: 110 MG CYCLES OF 21 DAYS
     Route: 065
     Dates: end: 20230627
  3. CYCLOPHOSPHAMIDE [Suspect]
     Active Substance: CYCLOPHOSPHAMIDE
     Indication: Triple negative breast cancer
     Route: 065
     Dates: start: 20230425
  4. APREPITANT [Concomitant]
     Active Substance: APREPITANT
     Indication: Product used for unknown indication
     Dates: start: 20230718
  5. CIPROFLOXACIN [Concomitant]
     Active Substance: CIPROFLOXACIN
     Indication: Product used for unknown indication
     Dates: start: 20230707
  6. CYCLOPHOSPHAMIDE [Concomitant]
     Active Substance: CYCLOPHOSPHAMIDE
     Indication: Triple negative breast cancer
     Dosage: DURATION: 63 DAYS
     Dates: start: 20230425, end: 20230627
  7. NEUPOGEN [Concomitant]
     Active Substance: FILGRASTIM
     Indication: White blood cell count decreased
     Dates: start: 20230425
  8. PALONOSETRON [Concomitant]
     Active Substance: PALONOSETRON
     Indication: Product used for unknown indication
     Dates: start: 20230425
  9. EPOETIN BETA [Concomitant]
     Active Substance: ERYTHROPOIETIN
     Indication: Product used for unknown indication
     Dates: start: 20230425
  10. DOXORUBICIN [Concomitant]
     Active Substance: DOXORUBICIN
     Indication: Triple negative breast cancer
     Dosage: DURATION: 63 DAYS
     Dates: start: 20230425, end: 20230627

REACTIONS (8)
  - Blastocystis infection [Recovered/Resolved]
  - Asthenia [Recovered/Resolved]
  - Neutrophil count decreased [Recovered/Resolved]
  - Nail pigmentation [Not Recovered/Not Resolved]
  - Alopecia [Not Recovered/Not Resolved]
  - Differential white blood cell count abnormal [Recovered/Resolved]
  - Vomiting [Recovered/Resolved]
  - Nausea [Recovered/Resolved]

NARRATIVE: CASE EVENT DATE: 20230501
